FAERS Safety Report 20201094 (Version 1)
Quarter: 2021Q4

REPORT INFORMATION
  Report Type: Spontaneous
  Country: US (occurrence: None)
  Receive Date: 20211217
  Receipt Date: 20211217
  Transmission Date: 20220303
  Serious: Yes (Life-Threatening, Disabling)
  Sender: FDA-Public Use
  Company Number: None

PATIENT
  Age: 54 Year
  Sex: Female
  Weight: 80.1 kg

DRUGS (8)
  1. REMDESIVIR [Suspect]
     Active Substance: REMDESIVIR
     Indication: COVID-19
     Dosage: OTHER QUANTITY : 5 IV;?OTHER FREQUENCY : GIVEN BY IV FOR 5;?
     Route: 042
     Dates: start: 20210814, end: 20210821
  2. DICLOFINAC SODIUM [Concomitant]
  3. ESTROGENS [Concomitant]
     Active Substance: ESTROGENS
  4. THYROID PILLS [Concomitant]
  5. BENZONATATE [Concomitant]
  6. VITAMIN D [Concomitant]
  7. VITAMIN B12 [Concomitant]
     Active Substance: CYANOCOBALAMIN
  8. TYLENOL [Concomitant]

REACTIONS (12)
  - Cardiac flutter [None]
  - Palpitations [None]
  - Heart rate increased [None]
  - Chest discomfort [None]
  - Chills [None]
  - Hyperhidrosis [None]
  - Diarrhoea [None]
  - Sinusitis [None]
  - Oxygen saturation decreased [None]
  - Fatigue [None]
  - Headache [None]
  - Product complaint [None]

NARRATIVE: CASE EVENT DATE: 20210814
